FAERS Safety Report 6207840-7 (Version None)
Quarter: 2009Q2

REPORT INFORMATION
  Report Type: 
  Country: None (occurrence: None)
  Receive Date: 20090528
  Receipt Date: 20090521
  Transmission Date: 20091009
  Serious: Yes (Other)
  Sender: FDA-Public Use
  Company Number: US-JNJCH-2009014327

PATIENT
  Age: 39 Year
  Sex: Male
  Weight: 72.6 kg

DRUGS (1)
  1. NATURAL CITRUS LISTERINE [Suspect]
     Indication: ALCOHOLISM
     Dosage: TEXT:TWO BOTTLES, 500 ML AND 250 ML, ONCE
     Route: 048

REACTIONS (3)
  - DRUG ABUSE [None]
  - INCORRECT ROUTE OF DRUG ADMINISTRATION [None]
  - MALAISE [None]
